FAERS Safety Report 15120878 (Version 8)
Quarter: 2020Q1

REPORT INFORMATION
  Report Type: Spontaneous
  Country: US (occurrence: US)
  Receive Date: 20180709
  Receipt Date: 20200129
  Transmission Date: 20200409
  Serious: No
  Sender: FDA-Public Use
  Company Number: US-SA-2018SA181252

PATIENT
  Age: 83 Year
  Sex: Female

DRUGS (1)
  1. AUBAGIO [Suspect]
     Active Substance: TERIFLUNOMIDE
     Indication: MULTIPLE SCLEROSIS
     Dosage: 14 MG, QD
     Route: 048
     Dates: start: 20180512

REACTIONS (12)
  - Rhinorrhoea [Not Recovered/Not Resolved]
  - Skin mass [Unknown]
  - Purulence [Unknown]
  - Respiratory rate increased [Unknown]
  - Oedema peripheral [Unknown]
  - Skin ulcer [Unknown]
  - Urinary tract infection [Not Recovered/Not Resolved]
  - Nocturnal dyspnoea [Unknown]
  - Erythema [Unknown]
  - Nasopharyngitis [Unknown]
  - Hypertension [Not Recovered/Not Resolved]
  - Unevaluable event [Unknown]

NARRATIVE: CASE EVENT DATE: 201903
